FAERS Safety Report 12569681 (Version 1)
Quarter: 2016Q3

REPORT INFORMATION
  Report Type: Spontaneous
  Country: US (occurrence: None)
  Receive Date: 20160718
  Receipt Date: 20160718
  Transmission Date: 20161109
  Serious: Yes (Other)
  Sender: FDA-Public Use
  Company Number: None

PATIENT
  Age: 22 Year
  Sex: Female
  Weight: 82.1 kg

DRUGS (1)
  1. DEPO-PROVERA [Suspect]
     Active Substance: MEDROXYPROGESTERONE ACETATE
     Indication: CONTRACEPTION
     Dosage: 1 INJECTION ONCE EVERY 3 MONTHS INTO THE MUSCLE
     Route: 030
     Dates: start: 20160616

REACTIONS (4)
  - Skin irritation [None]
  - Pruritus [None]
  - Discomfort [None]
  - Scar [None]

NARRATIVE: CASE EVENT DATE: 20160618
